FAERS Safety Report 6299573-6 (Version None)
Quarter: 2009Q3

REPORT INFORMATION
  Report Type: 
  Country: None (occurrence: None)
  Receive Date: 20090806
  Receipt Date: 20090727
  Transmission Date: 20100115
  Serious: No
  Sender: FDA-Public Use
  Company Number: US-EISAI INC.-E7273-00085-SPO-US

PATIENT
  Age: 51 Year
  Sex: Male

DRUGS (2)
  1. TARGRETIN [Suspect]
     Indication: MYCOSIS FUNGOIDES
     Route: 048
  2. TARGRETIN [Suspect]
     Route: 048

REACTIONS (1)
  - HODGKIN'S DISEASE [None]
